FAERS Safety Report 4840411-3 (Version None)
Quarter: 2005Q4

REPORT INFORMATION
  Report Type: 
  Country: None (occurrence: None)
  Receive Date: 20051024
  Receipt Date: 20050831
  Transmission Date: 20060501
  Serious: Yes (Life-Threatening)
  Sender: FDA-Public Use
  Company Number: 217278

PATIENT
  Age: 61 Year
  Sex: Female
  Weight: 168 kg

DRUGS (6)
  1. XOLAIR [Suspect]
     Dosage: 375 MG,Q2W,SUBCUTANEOUS
     Route: 058
     Dates: start: 20041222, end: 20050414
  2. FLOVENT [Concomitant]
  3. SEREVENT [Concomitant]
  4. FLONASE [Concomitant]
  5. CLARITIN [Concomitant]
  6. PREVACID [Concomitant]

REACTIONS (2)
  - PHARYNGEAL OEDEMA [None]
  - WHEEZING [None]
